FAERS Safety Report 15619378 (Version 1)
Quarter: 2018Q4

REPORT INFORMATION
  Report Type: Report from Study
  Country: None (occurrence: CO)
  Receive Date: 20181115
  Receipt Date: 20181115
  Transmission Date: 20190205
  Serious: Yes (Other)
  Sender: FDA-Public Use
  Company Number: CO-ABBVIE-18K-036-2461527-00

PATIENT
  Age: 38 Year
  Sex: Female
  Weight: 62 kg

DRUGS (1)
  1. HUMIRA [Suspect]
     Active Substance: ADALIMUMAB
     Indication: PSORIASIS
     Route: 058
     Dates: start: 20121105, end: 20180722

REACTIONS (5)
  - Oral herpes [Recovering/Resolving]
  - Hyperkeratosis [Recovering/Resolving]
  - Skin papilloma [Recovering/Resolving]
  - Dry skin [Recovering/Resolving]
  - Biopsy [Unknown]

NARRATIVE: CASE EVENT DATE: 2018
